FAERS Safety Report 8713426 (Version 4)
Quarter: 2013Q1

REPORT INFORMATION
  Report Type: Spontaneous
  Country: DE (occurrence: DE)
  Receive Date: 20120808
  Receipt Date: 20130103
  Transmission Date: 20140127
  Serious: Yes (Life-Threatening, Hospitalization)
  Sender: FDA-Public Use
  Company Number: DE-GLAXOSMITHKLINE-D0076581A

PATIENT
  Sex: Male
  Weight: 70 kg

DRUGS (4)
  1. DUODART [Suspect]
     Route: 065
     Dates: start: 201102, end: 20120714
  2. ANESTHETIC [Suspect]
     Indication: FACIAL OPERATION
     Route: 065
  3. ANALGESIC [Suspect]
     Indication: DENTAL CARE
     Route: 065
  4. SIMVASTATIN [Concomitant]
     Route: 065

REACTIONS (6)
  - Abnormal faeces [Recovered/Resolved]
  - Micturition disorder [Recovered/Resolved]
  - Testicular pain [Recovered/Resolved]
  - Cardiovascular disorder [Recovered/Resolved]
  - Urinary retention [Recovered/Resolved]
  - Syncope [Recovered/Resolved]
